FAERS Safety Report 9633529 (Version 2)
Quarter: 2013Q4

REPORT INFORMATION
  Report Type: Spontaneous
  Country: KR (occurrence: KR)
  Receive Date: 20131021
  Receipt Date: 20131106
  Transmission Date: 20140711
  Serious: Yes (Death, Other)
  Sender: FDA-Public Use
  Company Number: PHHY2013KR117689

PATIENT
  Age: 62 Year
  Sex: Male

DRUGS (3)
  1. EVEROLIMUS [Suspect]
     Indication: GASTRIC CANCER
     Dosage: 5 MG, BID; GIVEN ON DAYS 1 TO 21 WITHOUT REST
     Route: 048
     Dates: start: 20110718, end: 20111102
  2. EVEROLIMUS [Suspect]
     Indication: OFF LABEL USE
  3. CAPECITABINE [Suspect]
     Indication: GASTRIC CANCER
     Dosage: 650 MG/M2, BID; GIVEN ON DAYS 1 TO 14 FOLLOWED BY A 7 DAY REST PERIOD

REACTIONS (8)
  - Mucosal inflammation [Unknown]
  - Anaemia [Unknown]
  - Thrombocytopenia [Unknown]
  - Decreased appetite [Unknown]
  - Stomatitis [Unknown]
  - Neutropenia [Unknown]
  - Malignant neoplasm progression [Unknown]
  - Death [Fatal]
